FAERS Safety Report 7354415-2 (Version None)
Quarter: 2011Q1

REPORT INFORMATION
  Report Type: 
  Country: None (occurrence: None)
  Receive Date: 20110316
  Receipt Date: 20110307
  Transmission Date: 20110831
  Serious: Yes (Hospitalization, Other)
  Sender: FDA-Public Use
  Company Number: PHHY2011US13219

PATIENT
  Sex: Female
  Weight: 88.55 kg

DRUGS (31)
  1. LASIX [Concomitant]
  2. CARTIA XT [Concomitant]
  3. AMOXICILLIN [Concomitant]
  4. LEVOTHYROXINE SODIUM [Concomitant]
  5. NEUPOGEN [Concomitant]
  6. SYNTHROID [Concomitant]
  7. ARANESP [Concomitant]
  8. PANTOPRAZOLE SODIUM [Concomitant]
     Dosage: 40 MG, EVERY DAY
     Route: 048
  9. SYSTANE [Concomitant]
  10. EXJADE [Suspect]
     Indication: IRON OVERLOAD
     Dosage: 500 MG, TID
     Route: 048
     Dates: start: 20110101
  11. PRAZOSIN HCL [Concomitant]
  12. FUROSEMIDE [Concomitant]
     Dosage: 40 MG, BID
     Route: 048
  13. DARIFENACIN HYDROBROMIDE [Concomitant]
     Dosage: UNK, EVERY DAY
  14. MOXIFLOXACIN HYDROCHLORIDE [Concomitant]
     Dosage: 0.5 MG, UNK
  15. POTASSIUM CHLORIDE [Concomitant]
     Dosage: 20 MEQ, BID
     Route: 048
  16. EXJADE [Suspect]
     Indication: MYELODYSPLASTIC SYNDROME
     Dosage: 500 MG, TID
     Route: 048
     Dates: start: 20110126
  17. POTASSIUM [Concomitant]
  18. TOVIAZ [Concomitant]
  19. SYSTEN [Concomitant]
  20. CLOPIDOGREL SULFATE [Concomitant]
     Dosage: 75 MG, EVERY DAY
  21. LEVOTHYROXINE SODIUM [Concomitant]
     Dosage: 125 MG, EVERY DAY
     Route: 048
  22. AMOXICILLIN POTASSIUM CLAVULANATE [Concomitant]
     Dosage: 500 MG, TID
  23. PROTONIX [Concomitant]
     Dosage: UNK
  24. VESICARE [Concomitant]
  25. ALLOPURINOL [Concomitant]
  26. ENABLEX [Concomitant]
  27. CLOPIDOGREL [Concomitant]
  28. PLAVIX [Concomitant]
  29. XYZAL [Concomitant]
  30. DILTIAZEM HYDROCHLORIDE [Concomitant]
     Dosage: 300 MG, EVERY DAY
  31. DEFERASIROX [Concomitant]
     Dosage: 500 MG, ONE TIME DAILY
     Route: 048

REACTIONS (10)
  - HAEMOGLOBIN DECREASED [None]
  - NEUTROPENIA [None]
  - PLATELET COUNT DECREASED [None]
  - DIARRHOEA [None]
  - LEUKOPENIA [None]
  - WHITE BLOOD CELL COUNT DECREASED [None]
  - NEUTROPHIL COUNT DECREASED [None]
  - ANAEMIA [None]
  - THROMBOCYTOPENIA [None]
  - EPISTAXIS [None]
